FAERS Safety Report 6551334-6 (Version None)
Quarter: 2010Q1

REPORT INFORMATION
  Report Type: 
  Country: None (occurrence: None)
  Receive Date: 20100120
  Receipt Date: 20100111
  Transmission Date: 20100710
  Serious: Yes (Hospitalization)
  Sender: FDA-Public Use
  Company Number: 2010SP002023

PATIENT
  Age: 64 Year
  Sex: Female

DRUGS (3)
  1. REMERON [Suspect]
     Indication: DEPRESSION
     Dosage: 1 DF; PO;  1 DF;QD; PO
     Route: 048
     Dates: end: 20030101
  2. PREGABALIN [Concomitant]
     Indication: BACK PAIN
     Dosage: 300 MG; QD; PO
     Route: 048
     Dates: start: 20080401
  3. PREGABALIN [Concomitant]
     Indication: MUSCULOSKELETAL PAIN
     Dosage: 300 MG; QD; PO
     Route: 048
     Dates: start: 20080401

REACTIONS (3)
  - BACK PAIN [None]
  - MUSCULOSKELETAL PAIN [None]
  - RESTLESS LEGS SYNDROME [None]
